FAERS Safety Report 6285669-1 (Version None)
Quarter: 2009Q3

REPORT INFORMATION
  Report Type: 
  Country: None (occurrence: None)
  Receive Date: 20090724
  Receipt Date: 20090713
  Transmission Date: 20100115
  Serious: Yes (Hospitalization)
  Sender: FDA-Public Use
  Company Number: ADE2009-0737

PATIENT
  Age: 12 Year
  Sex: Male
  Weight: 43 kg

DRUGS (1)
  1. CEFTRIAXONE [Suspect]
     Indication: TONSILLITIS
     Dosage: 50MG/KG - DAILY -

REACTIONS (7)
  - ASTHENIA [None]
  - BLOOD IMMUNOGLOBULIN E INCREASED [None]
  - FATIGUE [None]
  - HEPATITIS [None]
  - HEPATOMEGALY [None]
  - HYPERGLYCAEMIA [None]
  - PHARYNGEAL ERYTHEMA [None]
